FAERS Safety Report 8784863 (Version 1)
Quarter: 2012Q4

REPORT INFORMATION
  Report Type: Spontaneous
  Country: US (occurrence: None)
  Receive Date: 20120907
  Receipt Date: 20120907
  Transmission Date: 20130627
  Serious: Yes (Other)
  Sender: FDA-Public Use
  Company Number: None

PATIENT
  Age: 28 Year
  Sex: Male

DRUGS (1)
  1. MEFLOQUINE [Suspect]
     Dates: start: 20120723, end: 20120802

REACTIONS (3)
  - Delusion [None]
  - Paranoia [None]
  - Insomnia [None]
